FAERS Safety Report 15034271 (Version 1)
Quarter: 2018Q2

REPORT INFORMATION
  Report Type: Other
  Country: FR (occurrence: FR)
  Receive Date: 20180620
  Receipt Date: 20180620
  Transmission Date: 20180711
  Serious: Yes (Hospitalization)
  Sender: FDA-Public Use
  Company Number: FR-MACLEODS PHARMACEUTICALS US LTD-MAC2018014294

PATIENT

DRUGS (5)
  1. IRBESARTAN. [Suspect]
     Active Substance: IRBESARTAN
     Indication: HYPERTENSION
     Dosage: 150 MILLIGRAM, QD, IN THE MORNING.
     Route: 048
  2. AERIUS [Suspect]
     Active Substance: DESLORATADINE
     Indication: ERYTHEMA
     Dosage: 5 MILLIGRAM, QD
     Route: 048
     Dates: start: 20180522, end: 20180524
  3. LOCOID [Suspect]
     Active Substance: HYDROCORTISONE BUTYRATE
     Indication: ERYTHEMA
     Dosage: UNK, 1/2 TO 1/3 OF TUBE PER DAY, THICK CREAM FOR LOCAL APPLICATION
     Route: 003
     Dates: start: 20180522, end: 20180524
  4. ROSUVASTATIN 5 MG [Suspect]
     Active Substance: ROSUVASTATIN
     Indication: HYPERCHOLESTEROLAEMIA
     Dosage: 5 MILLIGRAM, QD, IN THE EVENING.
     Route: 048
  5. CLOPIDOGREL [Concomitant]
     Active Substance: CLOPIDOGREL BISULFATE
     Indication: PRODUCT USED FOR UNKNOWN INDICATION
     Dosage: UNK
     Route: 065

REACTIONS (1)
  - Rash erythematous [Recovering/Resolving]

NARRATIVE: CASE EVENT DATE: 20180522
